FAERS Safety Report 21552926 (Version 3)
Quarter: 2023Q2

REPORT INFORMATION
  Report Type: Spontaneous
  Country: US (occurrence: US)
  Receive Date: 20221104
  Receipt Date: 20230418
  Transmission Date: 20230721
  Serious: Yes (Other)
  Sender: FDA-Public Use
  Company Number: US-GILEAD-2022-0603669

PATIENT
  Age: 64 Year
  Sex: Female

DRUGS (2)
  1. ATRIPLA [Suspect]
     Active Substance: EFAVIRENZ\EMTRICITABINE\TENOFOVIR DISOPROXIL FUMARATE
     Indication: HIV infection
     Dosage: UNK
     Route: 048
     Dates: start: 20060712, end: 20141231
  2. ATRIPLA [Suspect]
     Active Substance: EFAVIRENZ\EMTRICITABINE\TENOFOVIR DISOPROXIL FUMARATE
     Dosage: UNK
     Route: 048
     Dates: start: 20120829, end: 20150831

REACTIONS (5)
  - Renal impairment [Recovered/Resolved]
  - Renal failure [Unknown]
  - Bone density decreased [Unknown]
  - Tooth loss [Unknown]
  - Osteopenia [Recovered/Resolved]

NARRATIVE: CASE EVENT DATE: 20160616
